FAERS Safety Report 4880999-X (Version None)
Quarter: 2005Q4

REPORT INFORMATION
  Report Type: 
  Country: None (occurrence: None)
  Receive Date: 20051223
  Receipt Date: 20051025
  Transmission Date: 20060501
  Serious: No
  Sender: FDA-Public Use
  Company Number: 05P-163-0315098-00

PATIENT
  Age: 76 Year
  Sex: Female
  Weight: 61.2356 kg

DRUGS (13)
  1. HUMIRA [Suspect]
     Indication: RHEUMATOID ARTHRITIS
     Dosage: SEE IMAGE
     Route: 058
     Dates: start: 20050321, end: 20050608
  2. HUMIRA [Suspect]
     Indication: RHEUMATOID ARTHRITIS
     Dosage: SEE IMAGE
     Route: 058
     Dates: start: 20050906
  3. PREDNISONE [Concomitant]
  4. LORAZEPAM [Concomitant]
  5. TEMAZEPAM [Concomitant]
  6. BACLOFEN [Concomitant]
  7. VICODIN [Concomitant]
  8. ISOSORBIDE MONONITRATE [Concomitant]
  9. ATENOLOL [Concomitant]
  10. POTASSIUM CHLORIDE [Concomitant]
  11. VESICARE [Concomitant]
  12. VENLAFAXINE HCL [Concomitant]
  13. LANSOPRAZOLE [Concomitant]

REACTIONS (6)
  - CONDITION AGGRAVATED [None]
  - DIZZINESS [None]
  - FALL [None]
  - FATIGUE [None]
  - SKIN LACERATION [None]
  - WOUND INFECTION [None]
